FAERS Safety Report 9903057 (Version 4)
Quarter: 2014Q3

REPORT INFORMATION
  Report Type: Report from Study
  Country: AU (occurrence: AU)
  Receive Date: 20140217
  Receipt Date: 20140825
  Transmission Date: 20150326
  Serious: Yes (Disabling, Other)
  Sender: FDA-Public Use
  Company Number: PHHY2012AU129794

PATIENT
  Age: 53 Year
  Sex: Female
  Weight: 67 kg

DRUGS (22)
  1. ACLASTA [Suspect]
     Active Substance: ZOLEDRONIC ACID
     Dosage: 5 MG, UNK
     Route: 042
     Dates: start: 2010
  2. MOVICOL                            /01749801/ [Concomitant]
     Dosage: 13.125G/350.7MG/46.6MG/178.5MG, 01 OR 02 TID, PRN
     Route: 048
     Dates: start: 20130910
  3. ADT VACCINE [Concomitant]
     Active Substance: DIPHTHERIA AND TETANUS TOXOIDS
     Dosage: UNK
     Dates: start: 20130507
  4. PNEUMOVAX 23 [Concomitant]
     Active Substance: PNEUMOCOCCAL VACCINE, POLYVALENT 23
     Dosage: UNK
     Dates: start: 20130604
  5. ACLASTA [Suspect]
     Active Substance: ZOLEDRONIC ACID
     Dosage: 5 MG, UNK
     Route: 042
     Dates: start: 20130608
  6. PANADEINE FORTE [Concomitant]
     Active Substance: ACETAMINOPHEN\CODEINE PHOSPHATE
     Dosage: 01 OR 02, EVERY 06 HOURS, PRN
     Route: 048
     Dates: start: 20131220
  7. ZOCOR [Concomitant]
     Active Substance: SIMVASTATIN
     Dosage: 1 DF, NOCTE (AT NIGHT)
     Route: 048
     Dates: start: 20131220
  8. ACLASTA [Suspect]
     Active Substance: ZOLEDRONIC ACID
     Dosage: 5 MG, UNK
     Route: 042
     Dates: start: 20120609
  9. DULOXETINE HYDROCHLORIDE. [Concomitant]
     Active Substance: DULOXETINE HYDROCHLORIDE
     Dosage: 1 DF, QD
     Route: 048
     Dates: start: 20140204
  10. FLUVAX [Concomitant]
     Active Substance: INFLUENZA VIRUS VACCINE
     Dosage: UNK
     Dates: start: 20080424
  11. FLUVAX [Concomitant]
     Active Substance: INFLUENZA VIRUS VACCINE
     Dosage: UNK
     Dates: start: 20130307
  12. IMURAN [Concomitant]
     Active Substance: AZATHIOPRINE
     Dosage: 2 DF, QD
     Route: 048
     Dates: start: 20140204
  13. TEMAZE [Concomitant]
     Active Substance: TEMAZEPAM
     Dosage: 1 DF, NOCTE (AT NIGHT)
     Route: 048
     Dates: start: 20140204
  14. FLUVAX [Concomitant]
     Active Substance: INFLUENZA VIRUS VACCINE
     Dosage: UNK
     Dates: start: 20100412
  15. SOMAC CONTROL [Concomitant]
     Dosage: 1 DF, MANE (TOMORROW MORNING)
     Route: 048
     Dates: start: 20131220
  16. FLUVAX [Concomitant]
     Active Substance: INFLUENZA VIRUS VACCINE
     Dosage: UNK
     Dates: start: 20110324
  17. FLUVAX [Concomitant]
     Active Substance: INFLUENZA VIRUS VACCINE
     Dosage: UNK
     Dates: start: 20120529
  18. DIAZEPAM. [Concomitant]
     Active Substance: DIAZEPAM
     Dosage: 1 DF, QD, M.D.U (TO BE USED AS DIRECTED)
     Route: 048
     Dates: start: 20140204
  19. OSTELIN VITAMIN D + CALCIUM [Concomitant]
     Dosage: 12.5MG (EQUIVALENT TO 500 UNITS VITAMIN D/600MG), 01 OR 02 DAILY, M.D.U (TO BE USED AS DIRECTED)
     Route: 048
     Dates: start: 20120824
  20. ACLASTA [Suspect]
     Active Substance: ZOLEDRONIC ACID
     Dosage: 5 MG, UNK
     Route: 042
     Dates: start: 20110811
  21. DIABEX S.R. [Concomitant]
     Active Substance: METFORMIN HYDROCHLORIDE
     Dosage: 1 DF, NOCTE (AT NIGHT)
     Route: 048
     Dates: start: 20140204
  22. NEO B12 [Concomitant]
     Dosage: 1 DF, M.D.U (TO BE USED AS DIRECTED)
     Route: 030
     Dates: start: 20140204

REACTIONS (6)
  - Chronic inflammatory demyelinating polyradiculoneuropathy [Not Recovered/Not Resolved]
  - Type 2 diabetes mellitus [Unknown]
  - Inappropriate schedule of drug administration [Unknown]
  - Nerve compression [Unknown]
  - Fibula fracture [Recovered/Resolved]
  - Dyslipidaemia [Unknown]

NARRATIVE: CASE EVENT DATE: 2010
